FAERS Safety Report 17459526 (Version 1)
Quarter: 2020Q1

REPORT INFORMATION
  Report Type: Spontaneous
  Country: US (occurrence: US)
  Receive Date: 20200225
  Receipt Date: 20200225
  Transmission Date: 20200409
  Serious: No
  Sender: FDA-Public Use
  Company Number: US-ROCHE-2295679

PATIENT
  Age: 15 Year
  Sex: Male

DRUGS (1)
  1. NUTROPIN AQ [Suspect]
     Active Substance: SOMATROPIN
     Indication: PRODUCT USED FOR UNKNOWN INDICATION
     Dosage: NUSPIN 20
     Route: 058
     Dates: start: 20180701

REACTIONS (4)
  - Sleep disorder [Unknown]
  - Headache [Unknown]
  - Oral candidiasis [Unknown]
  - Appetite disorder [Unknown]

NARRATIVE: CASE EVENT DATE: 20190329
